FAERS Safety Report 17926926 (Version 1)
Quarter: 2020Q2

REPORT INFORMATION
  Report Type: Spontaneous
  Country: US (occurrence: US)
  Receive Date: 20200619
  Receipt Date: 20200619
  Transmission Date: 20200714
  Serious: Yes (Hospitalization)
  Sender: FDA-Public Use
  Company Number: None

PATIENT
  Age: 80 Year
  Sex: Female
  Weight: 48.99 kg

DRUGS (2)
  1. ALIMTA [Suspect]
     Active Substance: PEMETREXED DISODIUM
     Indication: NEOPLASM MALIGNANT
     Route: 042
     Dates: start: 20200320, end: 20200401
  2. ALI MTA [Concomitant]

REACTIONS (3)
  - Tachycardia [None]
  - Dizziness [None]
  - Rash [None]

NARRATIVE: CASE EVENT DATE: 20200601
